FAERS Safety Report 10497813 (Version 11)
Quarter: 2020Q1

REPORT INFORMATION
  Report Type: Report from Study
  Country: US (occurrence: US)
  Receive Date: 20141006
  Receipt Date: 20200122
  Transmission Date: 20200409
  Serious: Yes (Hospitalization, Other)
  Sender: FDA-Public Use
  Company Number: US-SA-2013SA134482

PATIENT
  Age: 57 Year
  Sex: Male

DRUGS (5)
  1. TERIFLUNOMIDE. [Suspect]
     Active Substance: TERIFLUNOMIDE
     Indication: MULTIPLE SCLEROSIS
     Dosage: 14 MG,QD
     Route: 048
     Dates: start: 20131217
  2. TERIFLUNOMIDE. [Suspect]
     Active Substance: TERIFLUNOMIDE
     Dosage: 14 MG, QD
     Route: 048
     Dates: start: 20191101
  3. TERIFLUNOMIDE. [Suspect]
     Active Substance: TERIFLUNOMIDE
     Dosage: 14 MG, QD
     Route: 048
  4. TERIFLUNOMIDE. [Suspect]
     Active Substance: TERIFLUNOMIDE
     Dosage: 14 MG,QD
     Route: 048
     Dates: start: 20140929
  5. TERIFLUNOMIDE. [Suspect]
     Active Substance: TERIFLUNOMIDE
     Dosage: 14 MG,QD
     Route: 048

REACTIONS (29)
  - Traumatic shock [Unknown]
  - Muscular weakness [Unknown]
  - Nerve compression [Not Recovered/Not Resolved]
  - Dysphonia [Unknown]
  - Surgery [Unknown]
  - Condition aggravated [Unknown]
  - Feeling abnormal [Not Recovered/Not Resolved]
  - Impaired work ability [Unknown]
  - Micturition urgency [Not Recovered/Not Resolved]
  - Back pain [Not Recovered/Not Resolved]
  - Dyspnoea [Unknown]
  - Road traffic accident [Unknown]
  - Heart rate increased [Unknown]
  - Pain [Unknown]
  - Paraesthesia [Not Recovered/Not Resolved]
  - Atrial fibrillation [Unknown]
  - Kidney infection [Unknown]
  - Depression [Not Recovered/Not Resolved]
  - Weight decreased [Unknown]
  - Diarrhoea [Not Recovered/Not Resolved]
  - Product dose omission [Unknown]
  - Condition aggravated [Not Recovered/Not Resolved]
  - Limb asymmetry [Unknown]
  - Blood pressure increased [Unknown]
  - Paraesthesia [Unknown]
  - Infection [Unknown]
  - Incontinence [Not Recovered/Not Resolved]
  - Pyrexia [Unknown]
  - Unevaluable event [Unknown]

NARRATIVE: CASE EVENT DATE: 20160508
